FAERS Safety Report 7964179-7 (Version None)
Quarter: 2011Q4

REPORT INFORMATION
  Report Type: 
  Country: None (occurrence: None)
  Receive Date: 20111208
  Receipt Date: 20111130
  Transmission Date: 20120403
  Serious: Yes (Other)
  Sender: FDA-Public Use
  Company Number: JP-BRISTOL-MYERS SQUIBB COMPANY-16261570

PATIENT
  Age: 38 Year
  Sex: Male

DRUGS (1)
  1. MAXIPIME [Suspect]

REACTIONS (2)
  - MONOPLEGIA [None]
  - DYSLALIA [None]
